FAERS Safety Report 4555520-6 (Version None)
Quarter: 2005Q1

REPORT INFORMATION
  Report Type: 
  Country: None (occurrence: None)
  Receive Date: 20050118
  Receipt Date: 20050118
  Transmission Date: 20050727
  Serious: No
  Sender: FDA-Public Use
  Company Number: None

PATIENT
  Sex: Female
  Weight: 67.1324 kg

DRUGS (1)
  1. VANCOMYCIN [Suspect]
     Indication: LYME DISEASE
     Dosage: 750 MG IV Q 12H
     Route: 042
     Dates: start: 20050112

REACTIONS (4)
  - FLUSHING [None]
  - PYREXIA [None]
  - SWELLING FACE [None]
  - WHEEZING [None]
